FAERS Safety Report 7606895-2 (Version None)
Quarter: 2011Q3

REPORT INFORMATION
  Report Type: 
  Country: None (occurrence: None)
  Receive Date: 20110712
  Receipt Date: 20110712
  Transmission Date: 20111222
  Serious: Yes (Hospitalization)
  Sender: FDA-Public Use
  Company Number: None

PATIENT
  Age: 57 Year
  Sex: Male
  Weight: 147.5 kg

DRUGS (2)
  1. LOSARTAN POTASSIUM [Suspect]
     Indication: HYPERTENSION
     Dosage: 25 MG EVERY DAY PO
     Route: 048
     Dates: start: 20110225, end: 20110628
  2. LOSARTAN POTASSIUM [Suspect]
     Indication: DIABETES MELLITUS
     Dosage: 25 MG EVERY DAY PO
     Route: 048
     Dates: start: 20110225, end: 20110628

REACTIONS (3)
  - PRURITUS [None]
  - URTICARIA [None]
  - ANGIOEDEMA [None]
